FAERS Safety Report 21028514 (Version 1)
Quarter: 2022Q2

REPORT INFORMATION
  Report Type: Report from Study
  Country: IT (occurrence: IT)
  Receive Date: 20220630
  Receipt Date: 20220630
  Transmission Date: 20220721
  Serious: Yes (Other)
  Sender: FDA-Public Use
  Company Number: IT-TEVA-2022-IT-2049619

PATIENT

DRUGS (8)
  1. PREDNISONE [Suspect]
     Active Substance: PREDNISONE
     Indication: Anti-neutrophil cytoplasmic antibody positive vasculitis
     Dosage: 1 MG/KG DAILY; 1 MG/KG/DAY FOR TWO WEEKS, 0.75 MG/ KG/DAY, 0.5MG/KG/DAY FOR ANOTHER ONE MONTH, FOLLO
     Route: 048
  2. PREDNISONE [Suspect]
     Active Substance: PREDNISONE
     Indication: Renal vasculitis
  3. RITUXIMAB [Suspect]
     Active Substance: RITUXIMAB
     Indication: Anti-neutrophil cytoplasmic antibody positive vasculitis
     Dosage: 375 MG/M2 ADMINISTERED FOR FOUR WEEKLY DOSES (ON DAYS 1, 8, 15, AND 22), FOLLOWED BY TWO MORE DOS...
     Route: 050
  4. RITUXIMAB [Suspect]
     Active Substance: RITUXIMAB
     Indication: Renal vasculitis
  5. CYCLOPHOSPHAMIDE [Suspect]
     Active Substance: CYCLOPHOSPHAMIDE
     Indication: Anti-neutrophil cytoplasmic antibody positive vasculitis
     Dosage: AT DAYS 4 AND 17
     Route: 042
  6. CYCLOPHOSPHAMIDE [Suspect]
     Active Substance: CYCLOPHOSPHAMIDE
     Indication: Renal vasculitis
  7. METHYLPREDNISOLONE [Suspect]
     Active Substance: METHYLPREDNISOLONE
     Indication: Anti-neutrophil cytoplasmic antibody positive vasculitis
     Dosage: THREE METHYLPREDNISOLONE PULSES (15 MG/KG) AT DAYS 1, 4, AND 8
     Route: 041
  8. METHYLPREDNISOLONE [Suspect]
     Active Substance: METHYLPREDNISOLONE
     Indication: Renal vasculitis

REACTIONS (2)
  - Systemic candida [Unknown]
  - Off label use [Unknown]
